FAERS Safety Report 9560750 (Version 1)
Quarter: 2013Q3

REPORT INFORMATION
  Report Type: Spontaneous
  Country: US (occurrence: None)
  Receive Date: 20130906
  Receipt Date: 20130906
  Transmission Date: 20140515
  Serious: No
  Sender: FDA-Public Use
  Company Number: 163-POMAL-13054198

PATIENT
  Age: 53 Year
  Sex: Female
  Weight: 57.61 kg

DRUGS (7)
  1. POMALYST [Suspect]
     Indication: PLASMA CELL MYELOMA
     Dosage: 2 MG, CAPSULE, 21 IN 21 D, PO
     Dates: start: 20130201
  2. DEXAMETHASONE [Concomitant]
  3. GABAPENTIN [Concomitant]
  4. ACYCLOVIR [Concomitant]
  5. MULTIVITAMINS [Concomitant]
  6. VELCADE (BORTEZOMIB) [Concomitant]
  7. STOOL SOFTENER (DOCUSATE SODIUM) [Concomitant]

REACTIONS (3)
  - Feeling abnormal [None]
  - White blood cell count decreased [None]
  - Weight decreased [None]
